FAERS Safety Report 8770524 (Version 3)
Quarter: 2012Q4

REPORT INFORMATION
  Report Type: 
  Country: FR (occurrence: JP)
  Receive Date: 20120906
  Receipt Date: 20121107
  Transmission Date: 20130627
  Serious: Yes (Other)
  Sender: FDA-Public Use
  Company Number: JP-FRI-1000038367

PATIENT
  Age: 75 Year
  Sex: Female
  Weight: 35 kg

DRUGS (8)
  1. MILNACIPRAN [Suspect]
     Indication: DEPRESSION
     Dosage: 150 mg
     Route: 048
     Dates: start: 20070319, end: 20110223
  2. AMOBAN [Concomitant]
     Dates: start: 20070411, end: 20110209
  3. HEAVY MAGNESIUM OXIDE [Concomitant]
     Dates: start: 20070418, end: 20070502
  4. CERCINE [Concomitant]
     Dates: start: 20070502, end: 20070516
  5. DOGMATYL [Concomitant]
     Dates: start: 20070815, end: 20100310
  6. SYMMETREL [Concomitant]
     Dates: start: 20091118, end: 20110218
  7. SEROQUEL [Concomitant]
     Dates: start: 20110121, end: 20110218
  8. TETRAMIDE [Concomitant]
     Dates: start: 20110112, end: 20110323

REACTIONS (2)
  - False positive investigation result [Recovered/Resolved]
  - Gait disturbance [Unknown]
